FAERS Safety Report 26102952 (Version 2)
Quarter: 2025Q4

REPORT INFORMATION
  Report Type: Report from Study
  Country: CA (occurrence: CA)
  Receive Date: 20251128
  Receipt Date: 20251204
  Transmission Date: 20260117
  Serious: Yes (Hospitalization)
  Sender: ABBVIE
  Company Number: CA-ABBVIE-6565048

PATIENT
  Age: 90 Year
  Sex: Male

DRUGS (2)
  1. LUPRON [Suspect]
     Active Substance: LEUPROLIDE ACETATE
     Indication: Prostate cancer
     Dosage: FORM STRENGTH: 22.5 MG?PREFILLED SYRINGE
     Route: 065
     Dates: start: 20240409
  2. LUPRON [Suspect]
     Active Substance: LEUPROLIDE ACETATE
     Dosage: FORM STRENGTH: 22.5 MG?PREFILLED SYRINGE
     Route: 065

REACTIONS (3)
  - Skin haemorrhage [Unknown]
  - Blister [Unknown]
  - Anaemia [Unknown]

NARRATIVE: CASE EVENT DATE: 20251123
